FAERS Safety Report 4495311-8 (Version None)
Quarter: 2004Q4

REPORT INFORMATION
  Report Type: 
  Country: None (occurrence: None)
  Receive Date: 20041108
  Receipt Date: 20041007
  Transmission Date: 20050328
  Serious: No
  Sender: FDA-Public Use
  Company Number: US-GLAXOSMITHKLINE-A0529013A

PATIENT
  Age: 58 Year
  Sex: Male

DRUGS (9)
  1. AVANDAMET [Suspect]
     Dosage: 2MG TWICE PER DAY
     Route: 048
     Dates: start: 20040930
  2. ACCUPRIL [Concomitant]
  3. PROTONIX [Concomitant]
  4. ASPIRIN [Concomitant]
  5. LODINE [Concomitant]
  6. PROPACET 100 [Concomitant]
     Route: 065
  7. OSTEO BIFLEX [Concomitant]
     Route: 065
  8. CRANBERRY [Concomitant]
     Route: 065
  9. VITAMIN C [Concomitant]

REACTIONS (1)
  - DYSGEUSIA [None]
